FAERS Safety Report 7749909-1 (Version None)
Quarter: 2011Q3

REPORT INFORMATION
  Report Type: 
  Country: None (occurrence: None)
  Receive Date: 20110907
  Receipt Date: 20110831
  Transmission Date: 20111222
  Serious: Yes (Hospitalization, Other)
  Sender: FDA-Public Use
  Company Number: 2011SP006211

PATIENT
  Age: 32 Year
  Sex: Female
  Weight: 156.9446 kg

DRUGS (5)
  1. ASPIRIN [Concomitant]
  2. CARDIZEM CD [Concomitant]
  3. NUVARING [Suspect]
     Indication: MENSTRUAL CYCLE MANAGEMENT
     Dosage: 1 DF;QM;VAG
     Route: 067
     Dates: start: 20081001, end: 20090201
  4. NUVARING [Suspect]
     Indication: CONTRACEPTION
     Dosage: 1 DF;QM;VAG
     Route: 067
     Dates: start: 20081001, end: 20090201
  5. CARTIA XT [Concomitant]

REACTIONS (5)
  - DYSMENORRHOEA [None]
  - PULMONARY EMBOLISM [None]
  - CHEST PAIN [None]
  - DYSPNOEA [None]
  - BACK PAIN [None]
